FAERS Safety Report 16266178 (Version 1)
Quarter: 2019Q2

REPORT INFORMATION
  Report Type: Spontaneous
  Country: GB (occurrence: GB)
  Receive Date: 20190502
  Receipt Date: 20190502
  Transmission Date: 20190711
  Serious: Yes (Other)
  Sender: FDA-Public Use
  Company Number: GB-TEVA-2019-GB-1044316

PATIENT
  Age: 45 Year
  Sex: Female
  Weight: 65.77 kg

DRUGS (2)
  1. FLUCONAZOLE. [Suspect]
     Active Substance: FLUCONAZOLE
     Indication: CANDIDA INFECTION
     Route: 048
     Dates: start: 20190112, end: 20190112
  2. METRONIDAZOLE. [Concomitant]
     Active Substance: METRONIDAZOLE

REACTIONS (2)
  - Rash [Recovered/Resolved]
  - Blister [Recovered/Resolved]

NARRATIVE: CASE EVENT DATE: 20190114
